FAERS Safety Report 5000704-6 (Version None)
Quarter: 2006Q2

REPORT INFORMATION
  Report Type: 
  Country: None (occurrence: None)
  Receive Date: 20060512
  Receipt Date: 20060504
  Transmission Date: 20061013
  Serious: Yes (Other)
  Sender: FDA-Public Use
  Company Number: US-JNJFOC-20060501498

PATIENT
  Sex: Female

DRUGS (3)
  1. REMICADE [Suspect]
     Indication: SARCOIDOSIS
     Route: 042
  2. IMURAN [Suspect]
  3. IMURAN [Suspect]
     Indication: DRUG USE FOR UNKNOWN INDICATION

REACTIONS (2)
  - EYE OPERATION [None]
  - WHITE BLOOD CELL COUNT DECREASED [None]
